FAERS Safety Report 11907516 (Version 2)
Quarter: 2016Q1

REPORT INFORMATION
  Report Type: Report from Study
  Country: US (occurrence: US)
  Receive Date: 20160111
  Receipt Date: 20160201
  Transmission Date: 20160526
  Serious: Yes (Hospitalization, Other)
  Sender: FDA-Public Use
  Company Number: US-GILEAD-2016-0191581

PATIENT
  Age: 59 Year
  Sex: Male

DRUGS (1)
  1. RANOLAZINE [Suspect]
     Active Substance: RANOLAZINE
     Indication: ANGINA PECTORIS
     Dosage: 1000 MG, QD
     Route: 048
     Dates: start: 2014

REACTIONS (4)
  - Myocardial infarction [Unknown]
  - Pericardial effusion [Unknown]
  - Coronary arterial stent insertion [Unknown]
  - Pleural effusion [Unknown]

NARRATIVE: CASE EVENT DATE: 2014
